FAERS Safety Report 5692457-3 (Version None)
Quarter: 2008Q2

REPORT INFORMATION
  Report Type: 
  Country: None (occurrence: None)
  Receive Date: 20080402
  Receipt Date: 20070905
  Transmission Date: 20081010
  Serious: No
  Sender: FDA-Public Use
  Company Number: US-BAYER-US-2007-028311

PATIENT
  Age: 75 Year
  Sex: Male
  Weight: 85 kg

DRUGS (4)
  1. LEUKINE [Suspect]
     Route: 058
     Dates: start: 20070728
  2. ATACAND [Concomitant]
     Indication: HYPERTENSION
     Route: 048
  3. GLIPIZIDE [Concomitant]
     Indication: DIABETES MELLITUS
     Route: 048
  4. HYDROCHLOROTHIAZIDE [Concomitant]
     Indication: HYPERTENSION
     Dosage: UNIT DOSE: 25 MG
     Route: 048

REACTIONS (5)
  - BURNING SENSATION [None]
  - ERYTHEMA [None]
  - EXFOLIATIVE RASH [None]
  - PAIN IN EXTREMITY [None]
  - SKIN EXFOLIATION [None]
